FAERS Safety Report 5013930-7 (Version None)
Quarter: 2006Q2

REPORT INFORMATION
  Report Type: 
  Country: None (occurrence: None)
  Receive Date: 20060530
  Receipt Date: 20051129
  Transmission Date: 20061013
  Serious: No
  Sender: FDA-Public Use
  Company Number: US-GLAXOSMITHKLINE-A0583838A

PATIENT
  Age: 45 Year
  Sex: Male

DRUGS (5)
  1. RETROVIR [Suspect]
     Indication: HIV INFECTION
     Dosage: 100MG PER DAY
     Route: 048
     Dates: start: 20050801, end: 20051129
  2. HYDROCHLOROTHIAZIDE [Concomitant]
  3. ATAZANAVIR [Concomitant]
  4. DIDANOSINE [Concomitant]
  5. TENOFOVIR [Concomitant]

REACTIONS (1)
  - MEDICATION ERROR [None]
